FAERS Safety Report 8362456-1 (Version None)
Quarter: 2012Q2

REPORT INFORMATION
  Report Type: 
  Country: None (occurrence: None)
  Receive Date: 20120516
  Receipt Date: 20120510
  Transmission Date: 20120825
  Serious: No
  Sender: FDA-Public Use
  Company Number: US-BIOGENIDEC-2012BI016383

PATIENT
  Age: 24 Year
  Sex: Male

DRUGS (3)
  1. AVONEX [Suspect]
     Indication: MULTIPLE SCLEROSIS
     Route: 030
     Dates: start: 20111120, end: 20120101
  2. AVONEX [Suspect]
     Route: 030
     Dates: start: 20120101, end: 20120420
  3. TYLENOL W/ CODEINE NO. 3 [Concomitant]
     Indication: PREMEDICATION

REACTIONS (4)
  - FEELING ABNORMAL [None]
  - MULTIPLE SCLEROSIS [None]
  - MULTIPLE SCLEROSIS RELAPSE [None]
  - HEADACHE [None]
